FAERS Safety Report 7647701-X (Version None)
Quarter: 2011Q3

REPORT INFORMATION
  Report Type: 
  Country: None (occurrence: None)
  Receive Date: 20110801
  Receipt Date: 20110801
  Transmission Date: 20111222
  Serious: Yes (Other)
  Sender: FDA-Public Use
  Company Number: None

PATIENT
  Age: 54 Year
  Sex: Male
  Weight: 90.718 kg

DRUGS (1)
  1. ASTEPRO [Suspect]
     Indication: RHINITIS ALLERGIC
     Dosage: 2 SPRAYS
     Route: 045
     Dates: start: 20101001, end: 20110515

REACTIONS (2)
  - ANOSMIA [None]
  - AGEUSIA [None]
